FAERS Safety Report 6871110-4 (Version None)
Quarter: 2010Q3

REPORT INFORMATION
  Report Type: 
  Country: None (occurrence: None)
  Receive Date: 20100723
  Receipt Date: 20100714
  Transmission Date: 20110219
  Serious: Yes (Hospitalization, Other)
  Sender: FDA-Public Use
  Company Number: US-ELI_LILLY_AND_COMPANY-US201005006510

PATIENT
  Sex: Male
  Weight: 90.703 kg

DRUGS (10)
  1. EFFIENT [Suspect]
     Indication: PERCUTANEOUS CORONARY INTERVENTION
     Dosage: 10 MG, DAILY (1/D)
     Dates: start: 20091001
  2. CRESTOR [Concomitant]
     Dosage: 20 MG, UNKNOWN
  3. OMEGA /01454401/ [Concomitant]
     Dosage: 1 MG, UNKNOWN
  4. NIACIN [Concomitant]
     Dosage: 1000 MG, UNKNOWN
  5. BYSTOLIC [Concomitant]
     Dosage: 5 MG, UNKNOWN
  6. RAMIPRIL /00885601/ [Concomitant]
     Dosage: 10 MG, UNKNOWN
  7. ASPIRIN [Concomitant]
     Dosage: 325 MG, UNKNOWN
  8. LOVAZA [Concomitant]
     Dosage: 1000 MG, UNKNOWN
  9. MULTI-VITAMIN [Concomitant]
  10. ACIPHEX [Concomitant]
     Dosage: 10 MG, UNKNOWN

REACTIONS (3)
  - IMPLANT SITE SCAR [None]
  - IN-STENT CORONARY ARTERY RESTENOSIS [None]
  - LUNG ADENOCARCINOMA STAGE I [None]
